FAERS Safety Report 16941783 (Version 1)
Quarter: 2019Q4

REPORT INFORMATION
  Report Type: Spontaneous
  Country: US (occurrence: US)
  Receive Date: 20190829
  Receipt Date: 20190829
  Transmission Date: 20200122
  Serious: Yes (Death, Hospitalization)
  Sender: FDA-Public Use
  Company Number: None

PATIENT
  Age: 92 Year
  Sex: Male
  Weight: 38.69 kg

DRUGS (3)
  1. RITUXIMAB. [Suspect]
     Active Substance: RITUXIMAB
     Indication: LYMPHOMA
     Route: 042
     Dates: start: 20180808
  2. DOXORUBICIN 2MG/ML [Suspect]
     Active Substance: DOXORUBICIN
     Indication: LYMPHOMA
     Route: 042
     Dates: start: 20180808
  3. CYTOXAN 20 MG/ML [Concomitant]
     Indication: LYMPHOMA
     Route: 042
     Dates: start: 20180808

REACTIONS (6)
  - Acute kidney injury [None]
  - Pulmonary oedema [None]
  - Pneumonia [None]
  - Dialysis [None]
  - Myocardial infarction [None]
  - Hypoxia [None]

NARRATIVE: CASE EVENT DATE: 20180809
